FAERS Safety Report 6480641-0 (Version None)
Quarter: 2009Q4

REPORT INFORMATION
  Report Type: 
  Country: None (occurrence: None)
  Receive Date: 20091208
  Receipt Date: 20091126
  Transmission Date: 20100525
  Serious: Yes (Other)
  Sender: FDA-Public Use
  Company Number: AU-PFIZER INC-2009303473

PATIENT
  Age: 39 Year
  Sex: Female

DRUGS (2)
  1. ZELDOX [Suspect]
     Indication: SCHIZOPHRENIA
     Dosage: 40 MG, 1X/DAY, NOCTERNALLY
     Route: 048
     Dates: start: 20091123, end: 20091124
  2. ABILIFY [Concomitant]
     Indication: SCHIZOPHRENIA
     Dosage: 45 MG, 1X/DAY

REACTIONS (1)
  - HYPERSOMNIA [None]
